FAERS Safety Report 8882018 (Version 5)
Quarter: 2013Q2

REPORT INFORMATION
  Report Type: Spontaneous
  Country: US (occurrence: US)
  Receive Date: 20121102
  Receipt Date: 20130425
  Transmission Date: 20140414
  Serious: Yes (Hospitalization, Disabling, Other)
  Sender: FDA-Public Use
  Company Number: US-009507513-1210USA010278

PATIENT
  Sex: Female

DRUGS (23)
  1. FOSAMAX [Suspect]
     Indication: OSTEOPOROSIS
     Dosage: 70 MG, UNK
     Route: 048
     Dates: start: 200408, end: 2008
  2. FOSAMAX [Suspect]
     Indication: OSTEOPENIA
  3. ALENDRONATE SODIUM [Suspect]
     Indication: OSTEOPENIA
     Dosage: 70 MG, UNK
     Dates: start: 2008, end: 2012
  4. LEVOXYL [Concomitant]
     Indication: THYROID DISORDER
     Dosage: UNK
     Dates: start: 2002
  5. WELLBUTRIN XL [Concomitant]
     Indication: DEPRESSION
     Dosage: UNK
     Dates: start: 2005, end: 2006
  6. ZOLOFT [Concomitant]
     Indication: DEPRESSION
     Dosage: UNK
     Dates: start: 2001, end: 2006
  7. ZOLOFT [Concomitant]
     Indication: ANXIETY
  8. ZYRTEC [Concomitant]
     Dosage: UNK
     Dates: start: 2001, end: 2007
  9. PREMPRO [Concomitant]
     Dosage: UNK
     Dates: start: 2005, end: 2007
  10. GABAPENTIN [Concomitant]
     Indication: RESTLESS LEGS SYNDROME
     Dosage: UNK
     Dates: start: 2005
  11. HYDROCODONE [Concomitant]
     Indication: PAIN
     Dosage: UNK
     Dates: start: 2001, end: 2012
  12. CYCLOBENZAPRINE HYDROCHLORIDE [Concomitant]
     Dosage: UNK
     Dates: start: 2002, end: 2009
  13. VITAMIN D (UNSPECIFIED) [Concomitant]
     Indication: OSTEOPENIA
  14. PROPOXYPHENE-N/ACETAMINOPHEN [Concomitant]
     Indication: PAIN
     Dosage: UNK
     Dates: start: 2003, end: 2010
  15. RANITIDINE [Concomitant]
     Dosage: UNK
     Dates: start: 2004, end: 2004
  16. AMOXICILLIN (+) CLAVULANATE POTASSIUM [Concomitant]
     Indication: INFECTION
     Dosage: UNK
     Dates: start: 2003, end: 2011
  17. SERTRALINE HYDROCHLORIDE [Concomitant]
     Indication: DEPRESSION
     Dosage: UNK
     Dates: start: 2006, end: 2012
  18. CENTRUM SILVER ULTRA WOMENS [Concomitant]
     Dosage: UNK UNK, QD
     Dates: start: 2002
  19. CALCIUM (UNSPECIFIED) (+) VITAMIN D (UNSPECIFIED) [Concomitant]
     Dosage: UNK, QD
     Dates: start: 2002
  20. VITAMIN E [Concomitant]
     Dosage: 400 DF, QD
     Dates: start: 1997
  21. DICLOFENAC [Concomitant]
     Indication: INFLAMMATION
     Dosage: UNK
     Dates: start: 2002, end: 2007
  22. NABUMETONE [Concomitant]
     Indication: INFLAMMATION
     Dosage: UNK
     Dates: start: 2003, end: 2004
  23. OXYCODONE [Concomitant]
     Indication: PAIN
     Dosage: UNK
     Dates: start: 2007, end: 2011

REACTIONS (29)
  - Intramedullary rod insertion [Not Recovered/Not Resolved]
  - Femur fracture [Not Recovered/Not Resolved]
  - Low turnover osteopathy [Not Recovered/Not Resolved]
  - Osteopenia [Not Recovered/Not Resolved]
  - Colon operation [Unknown]
  - Knee arthroplasty [Unknown]
  - Femur fracture [Not Recovered/Not Resolved]
  - Adverse event [Unknown]
  - Foot fracture [Recovering/Resolving]
  - Blister [Recovering/Resolving]
  - Cellulitis [Recovering/Resolving]
  - Bursitis [Unknown]
  - Infection [Unknown]
  - Meniscus injury [Unknown]
  - Osteoarthritis [Unknown]
  - Infection [Unknown]
  - Nasopharyngitis [Unknown]
  - Nasopharyngitis [Unknown]
  - Adverse event [Unknown]
  - Adverse event [Unknown]
  - Blood cholesterol increased [Unknown]
  - Inflammation [Unknown]
  - Inflammation [Unknown]
  - Infection [Unknown]
  - Infection [Unknown]
  - Inflammation [Unknown]
  - Ovarian failure [Unknown]
  - Vitamin D deficiency [Unknown]
  - Pain in extremity [Unknown]
